FAERS Safety Report 5797681-7 (Version None)
Quarter: 2008Q2

REPORT INFORMATION
  Report Type: 
  Country: None (occurrence: None)
  Receive Date: 20080618
  Receipt Date: 20070618
  Transmission Date: 20081010
  Serious: Yes (Other)
  Sender: FDA-Public Use
  Company Number: 200713769US

PATIENT
  Age: 60 Year
  Sex: Female

DRUGS (5)
  1. LANTUS [Suspect]
     Indication: DIABETES MELLITUS
     Dosage: 22 U QD
     Dates: start: 20070101
  2. LANTUS [Suspect]
     Indication: DIABETES MELLITUS
     Dosage: 25 U HS
     Dates: end: 20070101
  3. LANTUS [Suspect]
     Indication: DIABETES MELLITUS
     Dosage: 26 U QD
     Dates: start: 20050101
  4. OPTICLIK GREY [Suspect]
     Indication: DIABETES MELLITUS
     Dates: start: 20050101
  5. HUMALOG [Concomitant]

REACTIONS (2)
  - BLOOD GLUCOSE INCREASED [None]
  - HYPOGLYCAEMIA [None]
